FAERS Safety Report 21285278 (Version 1)
Quarter: 2022Q3

REPORT INFORMATION
  Report Type: Spontaneous
  Country: US (occurrence: US)
  Receive Date: 20220902
  Receipt Date: 20220902
  Transmission Date: 20221026
  Serious: No
  Sender: FDA-Public Use
  Company Number: US-HORIZON THERAPEUTICS-HZN-2021-006495

PATIENT
  Sex: Male

DRUGS (7)
  1. PROCYSBI [Suspect]
     Active Substance: CYSTEAMINE BITARTRATE
     Indication: Product used for unknown indication
     Dosage: UNK
     Route: 065
     Dates: start: 20191014
  2. PROCYSBI [Suspect]
     Active Substance: CYSTEAMINE BITARTRATE
     Indication: Cystinosis
     Dosage: 375 MG, BID
     Route: 065
     Dates: start: 20210521
  3. PROCYSBI [Suspect]
     Active Substance: CYSTEAMINE BITARTRATE
     Dosage: 450 MG, BID
     Route: 065
  4. PROCYSBI [Suspect]
     Active Substance: CYSTEAMINE BITARTRATE
     Dosage: TAKE ONE 300 MG PACKET WITH TWO 75 MG PACKETS BY MOUTH FOR A TOTAL OF 450 MG EVERY 12 HOURS
     Route: 048
     Dates: start: 20191126
  5. PROCYSBI [Suspect]
     Active Substance: CYSTEAMINE BITARTRATE
     Dosage: TAKE ONE 300 MG PACKET WITH TWO 75 MG PACKETS BY MOUTH FOR A TOTAL OF 450 MG EVERY 12 HOURS
     Route: 048
  6. FAMOTIDINE [Concomitant]
     Active Substance: FAMOTIDINE
     Indication: Product used for unknown indication
  7. POLYCITRA-K [CITRIC ACID;POTASSIUM CITRATE] [Concomitant]
     Indication: Product used for unknown indication

REACTIONS (2)
  - Vomiting [Unknown]
  - Amino acid level increased [Unknown]
